FAERS Safety Report 7412166-X (Version None)
Quarter: 2011Q2

REPORT INFORMATION
  Report Type: 
  Country: None (occurrence: None)
  Receive Date: 20110405
  Receipt Date: 20110329
  Transmission Date: 20111010
  Serious: Yes (Other)
  Sender: FDA-Public Use
  Company Number: US-ACCORD-008615

PATIENT
  Age: 70 Year
  Sex: Male
  Weight: 127 kg

DRUGS (2)
  1. GLIMEPIRIDE [Suspect]
     Indication: DIABETES MELLITUS
     Dosage: 4.00-MG-2.00 TIMES PER-1.0DAYS / ORAL
     Route: 048
     Dates: start: 20110328, end: 20110329
  2. INSULIN(INSULIN) [Concomitant]

REACTIONS (1)
  - COUGH [None]
